FAERS Safety Report 5152578-0 (Version None)
Quarter: 2006Q4

REPORT INFORMATION
  Report Type: 
  Country: None (occurrence: None)
  Receive Date: 20061109
  Receipt Date: 20020515
  Transmission Date: 20070319
  Serious: Yes (Death)
  Sender: FDA-Public Use
  Company Number: 2006117601

PATIENT
  Age: 65 Year
  Sex: Female

DRUGS (14)
  1. IRINOTECAN HCL [Suspect]
     Indication: COLON CANCER
     Dosage: 280 MG (ONCE), INTRAVENOUS; SEE IMAGE
     Route: 042
     Dates: start: 20020103, end: 20020103
  2. IRINOTECAN HCL [Suspect]
     Indication: COLON CANCER
     Dosage: 280 MG (ONCE), INTRAVENOUS; SEE IMAGE
     Route: 042
     Dates: start: 20020502, end: 20020502
  3. FLUOROURACIL [Suspect]
     Indication: COLON CANCER
     Dosage: 1560 MG (ONCE), INTRAVENOUS; SEE IMAGE
     Route: 042
     Dates: start: 20020103, end: 20020104
  4. FLUOROURACIL [Suspect]
     Indication: COLON CANCER
     Dosage: 1560 MG (ONCE), INTRAVENOUS; SEE IMAGE
     Route: 042
     Dates: start: 20020502, end: 20020503
  5. FOLINIC ACID (FOLINIC ACID) [Suspect]
     Indication: COLON CANCER
     Dosage: 156 MG (ONCE), INTRAVENOUS; SEE IMAGE
     Route: 042
     Dates: start: 20020103, end: 20020104
  6. FOLINIC ACID (FOLINIC ACID) [Suspect]
     Indication: COLON CANCER
     Dosage: 156 MG (ONCE), INTRAVENOUS; SEE IMAGE
     Route: 042
     Dates: start: 20020502, end: 20020503
  7. BACITRACINE-NEOMYCINE (BACITRACIN, NEOMYCIN SULFATE) [Concomitant]
  8. FLUCONAZOLE [Concomitant]
  9. G-CSF (GRANULOCYTE COLONY STIMULATING FACTOR) [Concomitant]
  10. HYALURONATE SODIUM (HYALURONATE SODIUM) [Concomitant]
  11. ITRACONAZOLE [Concomitant]
  12. LEVOFLOXACIN [Concomitant]
  13. OMEPRAZOLE [Concomitant]
  14. RIFAXIMIN (RIFAXIMIN) [Concomitant]

REACTIONS (10)
  - CACHEXIA [None]
  - COMA [None]
  - CYANOSIS [None]
  - DIARRHOEA [None]
  - LOSS OF CONSCIOUSNESS [None]
  - MUCOSAL INFLAMMATION [None]
  - NEUTROPENIA [None]
  - PULMONARY EMBOLISM [None]
  - PULSE ABSENT [None]
  - THROMBOCYTOPENIA [None]
